FAERS Safety Report 7906066-6 (Version None)
Quarter: 2011Q4

REPORT INFORMATION
  Report Type: 
  Country: None (occurrence: None)
  Receive Date: 20111110
  Receipt Date: 20111110
  Transmission Date: 20120403
  Serious: Yes (Life-Threatening, Hospitalization)
  Sender: FDA-Public Use
  Company Number: None

PATIENT
  Age: 58 Year
  Sex: Female
  Weight: 63.502 kg

DRUGS (1)
  1. VENOFER [Suspect]
     Indication: ANAEMIA
     Dosage: 500MG
     Route: 042
     Dates: start: 20111103, end: 20111103

REACTIONS (10)
  - VOMITING [None]
  - ANAEMIA [None]
  - ABDOMINAL DISTENSION [None]
  - HYPOTENSION [None]
  - SYNCOPE [None]
  - SHOCK [None]
  - ABDOMINAL PAIN [None]
  - DYSPNOEA [None]
  - DIARRHOEA [None]
  - ASCITES [None]
